FAERS Safety Report 6613322-0 (Version None)
Quarter: 2010Q1

REPORT INFORMATION
  Report Type: 
  Country: None (occurrence: None)
  Receive Date: 20100304
  Receipt Date: 20100223
  Transmission Date: 20100710
  Serious: Yes (Other)
  Sender: FDA-Public Use
  Company Number: PHHY2010BR11291

PATIENT
  Age: 89 Year
  Sex: Female
  Weight: 70 kg

DRUGS (5)
  1. EXELON [Suspect]
     Indication: DEMENTIA ALZHEIMER'S TYPE
     Dosage: 1 DF, QD
     Route: 062
     Dates: start: 20090901, end: 20091201
  2. EXELON [Suspect]
     Dosage: 1 DF, QD
     Route: 062
     Dates: start: 20100101
  3. NEXIUM [Concomitant]
     Dosage: 20 MG, BID
  4. TICLID [Concomitant]
     Dosage: 1 DF, QW3
  5. HYDROCHLOROTHIAZIDE [Concomitant]
     Dosage: 25 MG, QD

REACTIONS (5)
  - DECREASED APPETITE [None]
  - NEPHROLITHIASIS [None]
  - PEMPHIGOID [None]
  - URINARY TRACT INFECTION [None]
  - WEIGHT DECREASED [None]
